FAERS Safety Report 6609455-5 (Version None)
Quarter: 2010Q1

REPORT INFORMATION
  Report Type: 
  Country: None (occurrence: None)
  Receive Date: 20100302
  Receipt Date: 20100222
  Transmission Date: 20100710
  Serious: Yes (Other)
  Sender: FDA-Public Use
  Company Number: CN-ASTRAZENECA-2010SE07833

PATIENT
  Sex: Female

DRUGS (2)
  1. NEXIUM [Suspect]
     Indication: GASTRIC ULCER
     Route: 048
     Dates: start: 20090201
  2. NEXIUM [Suspect]
     Route: 048
     Dates: start: 20090301

REACTIONS (2)
  - GASTRIC MUCOSAL HYPERTROPHY [None]
  - GASTRIC POLYPS [None]
